FAERS Safety Report 9437741 (Version 2)
Quarter: 2013Q3

REPORT INFORMATION
  Report Type: Spontaneous
  Country: US (occurrence: US)
  Receive Date: 20130802
  Receipt Date: 20130815
  Transmission Date: 20140515
  Serious: No
  Sender: FDA-Public Use
  Company Number: US-PFIZER INC-2013223994

PATIENT
  Age: 8 Year
  Sex: Female
  Weight: 27.21 kg

DRUGS (3)
  1. CHILDRENS ADVIL [Suspect]
     Indication: INFLUENZA
     Dosage: TWO TEA SPOONS, EVERY 6 HOURS
     Route: 048
     Dates: start: 2013
  2. CHILDRENS ADVIL [Suspect]
     Indication: PYREXIA
  3. FLUORIDE [Concomitant]
     Indication: SUPPLEMENTATION THERAPY
     Dosage: UNK

REACTIONS (4)
  - Hypersensitivity [Recovered/Resolved]
  - Eye swelling [Recovered/Resolved]
  - Lip swelling [Recovered/Resolved]
  - Product quality issue [Recovered/Resolved]
